FAERS Safety Report 4731556-7 (Version None)
Quarter: 2005Q3

REPORT INFORMATION
  Report Type: 
  Country: None (occurrence: None)
  Receive Date: 20050802
  Receipt Date: 20050729
  Transmission Date: 20060218
  Serious: Yes (Death, Hospitalization)
  Sender: FDA-Public Use
  Company Number: US-BOEHRINGER INGELHEIM PHARMACEUTICALS, INC.-2005-BP-12881BP

PATIENT
  Sex: Female
  Weight: 53.97 kg

DRUGS (3)
  1. TIPRANAVIR / RITONAVIR CAPSULES [Suspect]
     Indication: HIV INFECTION
     Dosage: TPV/R 1000/400MG
     Route: 048
     Dates: start: 20050414, end: 20050711
  2. TENOFOVIR [Concomitant]
     Indication: HIV INFECTION
     Route: 048
     Dates: start: 20050414
  3. STAVUDINE [Concomitant]
     Indication: HIV INFECTION
     Route: 048
     Dates: start: 20050414

REACTIONS (5)
  - ASPIRATION [None]
  - GLOMERULONEPHRITIS RAPIDLY PROGRESSIVE [None]
  - METABOLIC ACIDOSIS [None]
  - RENAL FAILURE [None]
  - STATUS EPILEPTICUS [None]
